FAERS Safety Report 8087232-9 (Version None)
Quarter: 2012Q1

REPORT INFORMATION
  Report Type: 
  Country: None (occurrence: None)
  Receive Date: 20120128
  Receipt Date: 20110513
  Transmission Date: 20120608
  Serious: No
  Sender: FDA-Public Use
  Company Number: US-ABBOTT-11P-163-0725689-00

PATIENT
  Age: 54 Year
  Sex: Male

DRUGS (4)
  1. ASPIRIN [Concomitant]
     Indication: CARDIAC DISORDER
  2. HUMIRA [Suspect]
     Indication: PSORIASIS
     Dates: start: 20110401
  3. LOTREL [Concomitant]
     Indication: HYPERTENSION
     Dosage: 10/20
  4. ASPIRIN [Concomitant]
     Indication: PROPHYLAXIS

REACTIONS (1)
  - INJECTION SITE PAIN [None]
